FAERS Safety Report 4827594-6 (Version None)
Quarter: 2005Q4

REPORT INFORMATION
  Report Type: 
  Country: None (occurrence: None)
  Receive Date: 20051114
  Receipt Date: 20051102
  Transmission Date: 20060501
  Serious: Yes (Hospitalization, Other)
  Sender: FDA-Public Use
  Company Number: PHEH2005US12145

PATIENT
  Age: 74 Year
  Sex: Male

DRUGS (4)
  1. ZOMETA [Suspect]
     Indication: METASTASES TO BONE
     Dates: start: 20030324, end: 20050906
  2. PREDNISONE [Concomitant]
     Indication: PROSTATE CANCER
     Dosage: 5MG BID DAYS1-21
     Dates: start: 20050224, end: 20051003
  3. TAXOTERE [Concomitant]
     Indication: PROSTATE CANCER
     Dosage: 30MG/M2 WEEKLY 3/4 WEEKS
     Dates: start: 20021211, end: 20030829
  4. TAXOTERE [Concomitant]
     Dosage: 75MG/M2 Q21DAYS
     Dates: start: 20050224, end: 20051003

REACTIONS (5)
  - DISCOMFORT [None]
  - GINGIVAL SWELLING [None]
  - INFECTION [None]
  - OSTEONECROSIS [None]
  - SWELLING FACE [None]
